FAERS Safety Report 25419646 (Version 3)
Quarter: 2025Q3

REPORT INFORMATION
  Report Type: Report from Study
  Country: US (occurrence: US)
  Receive Date: 20250610
  Receipt Date: 20250808
  Transmission Date: 20251020
  Serious: Yes (Hospitalization, Other)
  Sender: ELI LILLY AND COMPANY
  Company Number: US-ELI_LILLY_AND_COMPANY-US202501001085

PATIENT
  Age: 61 Year
  Sex: Female

DRUGS (3)
  1. VERZENIO [Suspect]
     Active Substance: ABEMACICLIB
     Indication: Breast cancer female
     Dosage: 150 MG, BID
     Route: 048
     Dates: start: 20241206, end: 20250423
  2. VERZENIO [Suspect]
     Active Substance: ABEMACICLIB
     Dosage: 150 MG, BID
     Route: 048
     Dates: start: 20250528
  3. VERZENIO [Suspect]
     Active Substance: ABEMACICLIB
     Dosage: 150 MG, BID
     Route: 048
     Dates: end: 20250716

REACTIONS (16)
  - Septic shock [Recovered/Resolved]
  - Cholecystitis infective [Recovered/Resolved]
  - Septic shock [Unknown]
  - Malignant neoplasm progression [Not Recovered/Not Resolved]
  - Back pain [Recovered/Resolved]
  - Neuralgia [Unknown]
  - Hepatic enzyme increased [Unknown]
  - Thermal burn [Unknown]
  - Blood bilirubin increased [Recovered/Resolved]
  - Rotator cuff syndrome [Unknown]
  - Product dose omission in error [Unknown]
  - Herpes zoster [Recovered/Resolved]
  - Herpes zoster [Unknown]
  - Arthralgia [Unknown]
  - Diarrhoea [Not Recovered/Not Resolved]
  - Fatigue [Unknown]

NARRATIVE: CASE EVENT DATE: 20250101
